FAERS Safety Report 5492540-1 (Version None)
Quarter: 2007Q4

REPORT INFORMATION
  Report Type: 
  Country: None (occurrence: None)
  Receive Date: 20071022
  Receipt Date: 20071008
  Transmission Date: 20080405
  Serious: Yes (Other)
  Sender: FDA-Public Use
  Company Number: US-SHR-US-2007-038242

PATIENT
  Sex: Female

DRUGS (6)
  1. CAMPATH [Suspect]
     Dosage: 30 MG, 3X/WEEK
     Route: 058
     Dates: start: 20070701, end: 20071005
  2. CIMETIDINE [Concomitant]
     Dates: start: 20070101
  3. BENADRYL ^WARNER-LAMBERT^               /USA/ [Concomitant]
     Dates: start: 20070101
  4. TYLENOL (CAPLET) [Concomitant]
     Dates: start: 20070101
  5. FLAGYL [Concomitant]
     Indication: ANTI-INFECTIVE THERAPY
     Dates: start: 20070101
  6. FAMVIR                                  /NET/ [Concomitant]
     Indication: ANTI-INFECTIVE THERAPY
     Dates: start: 20070101

REACTIONS (5)
  - FEELING ABNORMAL [None]
  - HEADACHE [None]
  - MEMORY IMPAIRMENT [None]
  - MENTAL STATUS CHANGES [None]
  - SOMNOLENCE [None]
